FAERS Safety Report 8335617-5 (Version None)
Quarter: 2012Q2

REPORT INFORMATION
  Report Type: 
  Country: None (occurrence: None)
  Receive Date: 20120504
  Receipt Date: 20120425
  Transmission Date: 20120825
  Serious: Yes (Hospitalization)
  Sender: FDA-Public Use
  Company Number: US-BIOGENIDEC-2012BI014761

PATIENT
  Age: 30 Year
  Sex: Female

DRUGS (2)
  1. SOMA [Concomitant]
     Indication: MUSCLE RELAXANT THERAPY
  2. TYSABRI [Suspect]
     Indication: MULTIPLE SCLEROSIS
     Route: 042
     Dates: start: 20080711

REACTIONS (3)
  - ADVERSE DRUG REACTION [None]
  - VISUAL IMPAIRMENT [None]
  - MULTIPLE SCLEROSIS RELAPSE [None]
